FAERS Safety Report 19397234 (Version 1)
Quarter: 2021Q2

REPORT INFORMATION
  Report Type: Spontaneous
  Country: DE (occurrence: DE)
  Receive Date: 20210609
  Receipt Date: 20210609
  Transmission Date: 20210717
  Serious: Yes (Hospitalization)
  Sender: FDA-Public Use
  Company Number: NVSC2021DE123675

PATIENT
  Age: 72 Year
  Sex: Male
  Weight: 94 kg

DRUGS (2)
  1. METOPROLOL. [Suspect]
     Active Substance: METOPROLOL
     Indication: PRODUCT USED FOR UNKNOWN INDICATION
     Dosage: 95 MG, QD (0?0?1?0)
     Route: 048
  2. ASPIRIN. [Concomitant]
     Active Substance: ASPIRIN
     Indication: PRODUCT USED FOR UNKNOWN INDICATION
     Dosage: 100 MG, QD (0?0?1?0)
     Route: 048

REACTIONS (5)
  - Bradycardia [Unknown]
  - Syncope [Unknown]
  - Fall [Unknown]
  - Chest discomfort [Unknown]
  - Dyspnoea exertional [Unknown]
